FAERS Safety Report 4648612-4 (Version None)
Quarter: 2005Q2

REPORT INFORMATION
  Report Type: 
  Country: None (occurrence: None)
  Receive Date: 20050427
  Receipt Date: 20050418
  Transmission Date: 20051028
  Serious: Yes (Other)
  Sender: FDA-Public Use
  Company Number: 213871

PATIENT
  Age: 19 Year
  Sex: Male

DRUGS (4)
  1. RAPTIVA [Suspect]
     Indication: PSORIASIS
     Dosage: 1 MG/KG, 1/WEEK, SUBCUTANEOUS
     Route: 058
     Dates: start: 20041115, end: 20050111
  2. SILICON DIOXIDE (SILICON DIOXIDE) [Concomitant]
  3. BETADERM NOS (?BETAMETHASONE VALERATE, ALUMINUM ACETATE, SALICYLIC ACI [Concomitant]
  4. NADIFLOXAICN (NADIFLOXACIN) [Concomitant]

REACTIONS (1)
  - ACNE CONGLOBATA [None]
